FAERS Safety Report 10637833 (Version 1)
Quarter: 2014Q4

REPORT INFORMATION
  Report Type: Spontaneous
  Country: AR (occurrence: AR)
  Receive Date: 20141208
  Receipt Date: 20141208
  Transmission Date: 20150529
  Serious: Yes (Congenital Anomaly)
  Sender: FDA-Public Use
  Company Number: AR-MYLANLABS-2014M1013021

PATIENT

DRUGS (4)
  1. METHYLPREDNISOLONE. [Concomitant]
     Active Substance: METHYLPREDNISOLONE
     Route: 064
  2. MYCOPHENOLATE MOFETIL. [Suspect]
     Active Substance: MYCOPHENOLATE MOFETIL
     Indication: OFF LABEL USE
  3. MYCOPHENOLATE MOFETIL. [Suspect]
     Active Substance: MYCOPHENOLATE MOFETIL
     Indication: SYSTEMIC LUPUS ERYTHEMATOSUS
     Dosage: 1 G/D
     Route: 064
  4. ENOXAPARIN SODIUM. [Concomitant]
     Active Substance: ENOXAPARIN SODIUM
     Route: 064

REACTIONS (10)
  - Cleft lip and palate [Unknown]
  - Oesophageal atresia [Unknown]
  - Microphthalmos [Unknown]
  - Congenital musculoskeletal anomaly [Unknown]
  - Patent ductus arteriosus [Unknown]
  - Microtia [Unknown]
  - Atrioventricular septal defect [Unknown]
  - Foetal exposure during pregnancy [Unknown]
  - Coloboma [Unknown]
  - Hemivertebra [Unknown]
